FAERS Safety Report 8838570 (Version 1)
Quarter: 2012Q4

REPORT INFORMATION
  Report Type: Report from Study
  Country: US (occurrence: PT)
  Receive Date: 20121012
  Receipt Date: 20121012
  Transmission Date: 20130627
  Serious: Yes (Other)
  Sender: FDA-Public Use
  Company Number: US-ABBOTT-12P-163-0993740-00

PATIENT
  Sex: Female

DRUGS (4)
  1. NORVIR [Suspect]
     Indication: ANTIRETROVIRAL THERAPY
  2. INTELENCE [Suspect]
     Indication: ANTIRETROVIRAL THERAPY
  3. PREZISTA [Suspect]
     Indication: ANTIRETROVIRAL THERAPY
  4. TRUVADA [Suspect]
     Indication: ANTIRETROVIRAL THERAPY

REACTIONS (1)
  - Abortion spontaneous [Unknown]
